FAERS Safety Report 17546554 (Version 1)
Quarter: 2020Q1

REPORT INFORMATION
  Report Type: Report from Study
  Country: DE (occurrence: DE)
  Receive Date: 20200316
  Receipt Date: 20200316
  Transmission Date: 20200409
  Serious: Yes (Hospitalization, Other)
  Sender: FDA-Public Use
  Company Number: DE-PFIZER INC-2020109618

PATIENT
  Age: 38 Year
  Sex: Female
  Weight: 96 kg

DRUGS (2)
  1. ETHINYLESTRADIOL/LEVONORGESTREL [Suspect]
     Active Substance: ETHINYL ESTRADIOL\LEVONORGESTREL
     Indication: HORMONAL CONTRACEPTION
     Dosage: UNK, MORE THAN 10 YEARS
     Route: 048
     Dates: start: 20090202, end: 20181230
  2. L-THYROXINE [Concomitant]
     Active Substance: LEVOTHYROXINE
     Dosage: 75 MG, UNK
     Dates: start: 201709

REACTIONS (1)
  - Cerebral venous sinus thrombosis [Unknown]

NARRATIVE: CASE EVENT DATE: 20181231
